FAERS Safety Report 6496528-3 (Version None)
Quarter: 2009Q4

REPORT INFORMATION
  Report Type: 
  Country: None (occurrence: None)
  Receive Date: 20091210
  Receipt Date: 20091127
  Transmission Date: 20100525
  Serious: Yes (Other)
  Sender: FDA-Public Use
  Company Number: THQ2009A02143

PATIENT
  Age: 32 Year
  Sex: Female

DRUGS (6)
  1. PIOGLITAZONE HCL [Suspect]
     Indication: TYPE 2 DIABETES MELLITUS
     Dosage: 15 MG (1 D); PER ORAL, 30 MG (1 D); PER ORAL, 45 MG (1 D); PER ORAL
     Route: 048
     Dates: start: 20080615, end: 20080726
  2. PIOGLITAZONE HCL [Suspect]
     Indication: TYPE 2 DIABETES MELLITUS
     Dosage: 15 MG (1 D); PER ORAL, 30 MG (1 D); PER ORAL, 45 MG (1 D); PER ORAL
     Route: 048
     Dates: start: 20080727, end: 20080831
  3. PIOGLITAZONE HCL [Suspect]
     Indication: TYPE 2 DIABETES MELLITUS
     Dosage: 15 MG (1 D); PER ORAL, 30 MG (1 D); PER ORAL, 45 MG (1 D); PER ORAL
     Route: 048
     Dates: start: 20080901, end: 20080910
  4. PLACEBO [Suspect]
     Indication: TYPE 2 DIABETES MELLITUS
     Dosage: 1 TAB. (1 D); PER ORAL, 1 TAB. (1 D); PER ORAL
     Route: 048
     Dates: start: 20080615, end: 20080831
  5. PLACEBO [Suspect]
     Indication: TYPE 2 DIABETES MELLITUS
     Dosage: 1 TAB. (1 D); PER ORAL, 1 TAB. (1 D); PER ORAL
     Route: 048
     Dates: start: 20080901, end: 20080910
  6. PLACEBO BASELINE THERAPY (PLACEBO) [Suspect]
     Indication: TYPE 2 DIABETES MELLITUS
     Dosage: 1 TAB. (1 D); PER ORAL
     Route: 048
     Dates: start: 20080601, end: 20080614

REACTIONS (4)
  - ABORTION SPONTANEOUS [None]
  - BLOOD GLUCOSE INCREASED [None]
  - DRUG EXPOSURE DURING PREGNANCY [None]
  - PREGNANCY WITH CONTRACEPTIVE DEVICE [None]
